FAERS Safety Report 14090963 (Version 1)
Quarter: 2017Q4

REPORT INFORMATION
  Report Type: Spontaneous
  Country: US (occurrence: US)
  Receive Date: 20171016
  Receipt Date: 20171016
  Transmission Date: 20180321
  Serious: No
  Sender: FDA-Public Use
  Company Number: US-ENDO PHARMACEUTICALS INC-2016SCPR016268

PATIENT
  Sex: Male

DRUGS (2)
  1. CHOLESTYRAMINE. [Suspect]
     Active Substance: CHOLESTYRAMINE
     Dosage: 1 PACKET, DAILY
     Route: 048
     Dates: start: 2004
  2. CHOLESTYRAMINE. [Suspect]
     Active Substance: CHOLESTYRAMINE
     Indication: BOWEL MOVEMENT IRREGULARITY
     Dosage: 1 PACKET, DAILY
     Route: 048
     Dates: start: 2004

REACTIONS (4)
  - Wrong technique in product usage process [Unknown]
  - Off label use [Unknown]
  - Product taste abnormal [Not Recovered/Not Resolved]
  - Product odour abnormal [Not Recovered/Not Resolved]

NARRATIVE: CASE EVENT DATE: 2004
